FAERS Safety Report 7793279-X (Version None)
Quarter: 2011Q3

REPORT INFORMATION
  Report Type: 
  Country: None (occurrence: None)
  Receive Date: 20110929
  Receipt Date: 20110919
  Transmission Date: 20111222
  Serious: Yes (Hospitalization, Other)
  Sender: FDA-Public Use
  Company Number: 123594

PATIENT
  Age: 60 Year
  Sex: Male

DRUGS (4)
  1. LEUCOVORIN CALCIUM [Suspect]
     Indication: GASTROINTESTINAL CARCINOMA
     Dosage: IV
     Route: 042
     Dates: start: 20110831, end: 20110902
  2. BRIVANIB ALANINATE [Suspect]
     Indication: GASTROINTESTINAL CARCINOMA
     Dosage: 800 MILLIGRAM, ORAL
     Route: 048
     Dates: start: 20110831
  3. FLUOROURACIL [Suspect]
     Indication: GASTROINTESTINAL CARCINOMA
     Dosage: 4224 MILLIGRAM IV
     Route: 042
     Dates: start: 20110831, end: 20110902
  4. LEUCOVORIN CALCIUM [Suspect]
     Indication: GASTROINTESTINAL CARCINOMA
     Dosage: IV
     Route: 042
     Dates: start: 20110831, end: 20110902

REACTIONS (4)
  - INCORRECT DOSE ADMINISTERED BY DEVICE [None]
  - DEVICE FAILURE [None]
  - MEDICATION ERROR [None]
  - OVERDOSE [None]
